FAERS Safety Report 9910351 (Version 1)
Quarter: 2014Q1

REPORT INFORMATION
  Report Type: Spontaneous
  Country: US (occurrence: US)
  Receive Date: 20140219
  Receipt Date: 20140219
  Transmission Date: 20141002
  Serious: Yes (Death)
  Sender: FDA-Public Use
  Company Number: US-ABBVIE-14P-163-1202418-00

PATIENT
  Sex: Male
  Weight: 54.93 kg

DRUGS (9)
  1. HUMIRA [Suspect]
     Indication: PRODUCT USED FOR UNKNOWN INDICATION
     Dosage: APPROXIMATELY 55 DOSES
     Dates: start: 201104, end: 201305
  2. REMICADE [Suspect]
     Indication: CROHN^S DISEASE
     Route: 042
     Dates: start: 200908, end: 201104
  3. REMICADE [Suspect]
     Indication: COLITIS ULCERATIVE
     Dates: start: 20130813
  4. BALSALAZIDE [Concomitant]
     Indication: CROHN^S DISEASE
     Route: 048
  5. ADVAIR [Concomitant]
     Indication: PRODUCT USED FOR UNKNOWN INDICATION
     Route: 055
  6. OMEPRAZOLE [Concomitant]
     Indication: GASTROOESOPHAGEAL REFLUX DISEASE
     Route: 048
  7. PREDNISONE [Concomitant]
     Indication: CROHN^S DISEASE
     Route: 048
  8. OXYCODONE [Concomitant]
     Indication: PAIN
     Route: 048
  9. 6-MP [Concomitant]
     Dates: start: 2009

REACTIONS (1)
  - Leukaemia [Fatal]
